FAERS Safety Report 26210855 (Version 1)
Quarter: 2025Q4

REPORT INFORMATION
  Report Type: Spontaneous
  Country: US (occurrence: US)
  Receive Date: 20251230
  Receipt Date: 20251230
  Transmission Date: 20260118
  Serious: Yes (Life-Threatening, Hospitalization)
  Sender: DR REDDYS
  Company Number: US-DRL-USA-USA/2025/12/019875

PATIENT
  Age: 27 Year
  Sex: Female

DRUGS (4)
  1. CARBOPROST [Suspect]
     Active Substance: CARBOPROST
     Indication: Haemorrhage prophylaxis
  2. PHENYLEPHRINE [Suspect]
     Active Substance: PHENYLEPHRINE
     Indication: Procedural hypotension
  3. OXYTOCIN [Suspect]
     Active Substance: OXYTOCIN
     Indication: Procedural hypotension
  4. VASOPRESSIN [Suspect]
     Active Substance: VASOPRESSIN
     Indication: Haemorrhage prophylaxis

REACTIONS (2)
  - Drug ineffective [Unknown]
  - Maternal exposure during delivery [Unknown]
